FAERS Safety Report 17666381 (Version 1)
Quarter: 2020Q2

REPORT INFORMATION
  Report Type: Spontaneous
  Country: US (occurrence: US)
  Receive Date: 20200414
  Receipt Date: 20200414
  Transmission Date: 20200713
  Serious: Yes (Other)
  Sender: FDA-Public Use
  Company Number: None

PATIENT
  Age: 69 Year
  Sex: Male
  Weight: 74.25 kg

DRUGS (14)
  1. CALCIUM 600 MG [Concomitant]
  2. D3 50 MCG [Concomitant]
  3. FOLIC ACID. [Concomitant]
     Active Substance: FOLIC ACID
  4. COQ10 100 MG [Concomitant]
  5. LUTEIN 20 MG [Concomitant]
  6. SENTRY SENIOR MULTIVITAMIN [Concomitant]
  7. PROBIOTIC 10 [Concomitant]
     Active Substance: DIETARY SUPPLEMENT\PROBIOTICS
  8. B12 2500 MCG [Concomitant]
  9. TURMERIC CURCUMIN [Concomitant]
     Active Substance: HERBALS\TURMERIC
  10. AMOX/K CLAV 875-125 TAB NORT SUBSTITUTED FOR AUGMENTIN [Suspect]
     Active Substance: AMOXICILLIN\CLAVULANATE POTASSIUM
     Indication: TOOTH ABSCESS
     Dosage: ?          QUANTITY:20 TABLET(S);?
     Route: 048
     Dates: start: 20190106, end: 20200112
  11. MAGNESIUM 100 MG [Concomitant]
  12. FISH OIL 1200 MG [Concomitant]
  13. RESVERATROL 1600 MG [Concomitant]
  14. ASPIRIN 81 MG [Concomitant]
     Active Substance: ASPIRIN

REACTIONS (6)
  - Vomiting [None]
  - Diarrhoea [None]
  - Asthenia [None]
  - Retching [None]
  - Product substitution issue [None]
  - Product quality issue [None]

NARRATIVE: CASE EVENT DATE: 20200108
